FAERS Safety Report 6248341-X (Version None)
Quarter: 2009Q2

REPORT INFORMATION
  Report Type: 
  Country: None (occurrence: None)
  Receive Date: 20090629
  Receipt Date: 20090618
  Transmission Date: 20091009
  Serious: Yes (Other)
  Sender: FDA-Public Use
  Company Number: PHEH2009US06484

PATIENT
  Sex: Male
  Weight: 61.224 kg

DRUGS (9)
  1. ZOMETA [Suspect]
     Indication: MULTIPLE MYELOMA
     Dosage: 4 MG, QMO
     Route: 042
     Dates: start: 20040601, end: 20061201
  2. ZOMETA [Suspect]
     Dosage: 4 MG, EVERY OTHER MONTH
     Dates: start: 20061201, end: 20090201
  3. ARANEFT [Concomitant]
  4. ALLOPURINOL [Concomitant]
  5. DEXAMETHASONE [Concomitant]
  6. THALIDOMIDE [Concomitant]
  7. NEXIUM [Concomitant]
  8. LORTAB [Concomitant]
  9. AMPICILLIN [Concomitant]

REACTIONS (1)
  - OSTEONECROSIS [None]
